FAERS Safety Report 14292732 (Version 1)
Quarter: 2017Q4

REPORT INFORMATION
  Report Type: Report from Study
  Country: TW (occurrence: TW)
  Receive Date: 20171215
  Receipt Date: 20171215
  Transmission Date: 20180321
  Serious: Yes (Hospitalization)
  Sender: FDA-Public Use
  Company Number: TW-ROCHE-2019912

PATIENT
  Age: 74 Year
  Sex: Male
  Weight: 54.6 kg

DRUGS (8)
  1. BEVACIZUMAB. [Suspect]
     Active Substance: BEVACIZUMAB
     Indication: METASTASES TO CENTRAL NERVOUS SYSTEM
  2. MEGEST (TAIWAN) [Concomitant]
     Route: 065
     Dates: start: 20170206
  3. TETRACYCLINE [Concomitant]
     Active Substance: TETRACYCLINE
     Dosage: OPHTHALMIC OINTMENT
     Route: 061
     Dates: start: 20170306
  4. ERLOTINIB [Suspect]
     Active Substance: ERLOTINIB
     Indication: NON-SMALL CELL LUNG CANCER
     Dosage: LAST DOSE PRIORO TO SAE: 01/NOV/2017
     Route: 048
     Dates: start: 20170220, end: 20171102
  5. ERLOTINIB [Suspect]
     Active Substance: ERLOTINIB
     Indication: METASTASES TO CENTRAL NERVOUS SYSTEM
     Route: 048
     Dates: start: 20171114
  6. NORVASC [Concomitant]
     Active Substance: AMLODIPINE BESYLATE
     Route: 065
     Dates: start: 20170605
  7. IMOLEX [Concomitant]
     Route: 065
     Dates: start: 20170331
  8. BEVACIZUMAB. [Suspect]
     Active Substance: BEVACIZUMAB
     Indication: NON-SMALL CELL LUNG CANCER
     Dosage: LAST DOSE PRIORO TO SAE: 06/OCT/2017
     Route: 042
     Dates: start: 20170220, end: 20171030

REACTIONS (1)
  - Acute kidney injury [Recovering/Resolving]

NARRATIVE: CASE EVENT DATE: 20171030
